FAERS Safety Report 4504224-4 (Version None)
Quarter: 2004Q4

REPORT INFORMATION
  Report Type: 
  Country: None (occurrence: None)
  Receive Date: 20041112
  Receipt Date: 20041102
  Transmission Date: 20050328
  Serious: Yes (Hospitalization)
  Sender: FDA-Public Use
  Company Number: 2004238934US

PATIENT
  Age: 35 Year
  Sex: Female

DRUGS (15)
  1. ELLENCE [Suspect]
     Indication: BREAST CANCER
     Dosage: 163 MG, Q 21 D, CYCLIC, IV
     Route: 042
     Dates: start: 20040729
  2. COMPARATOR-DOCETAXEL (DOCETAXEL) INJECTION [Suspect]
     Indication: BREAST CANCER
     Dosage: 163 MG, Q 21 D, CYCLIC, IV
     Route: 042
     Dates: start: 20040729
  3. CYCLOPHOSPHAMIDE [Suspect]
     Indication: BREAST CANCER
     Dosage: 1085 MG, Q21 D, CYCLIC, IV
     Route: 042
     Dates: start: 20040729
  4. COMPARATOR - PEGFILGRASTIM (PEGFILGRASTIM) INJECTION [Suspect]
     Indication: BREAST CANCER
     Dosage: 6 MG, CYCLIC, SUBCUTANEOUS
     Route: 058
     Dates: start: 20040730, end: 20041001
  5. KYTRIL [Concomitant]
  6. ATIVAN [Concomitant]
  7. DECADRON [Concomitant]
  8. ARANESP [Concomitant]
  9. AVALIDE [Concomitant]
  10. ZOCOR [Concomitant]
  11. SULAR [Concomitant]
  12. ALLEGRA [Concomitant]
  13. XANAX [Concomitant]
  14. LOMOTIL [Concomitant]
  15. VIOXX [Concomitant]

REACTIONS (2)
  - NAUSEA [None]
  - VOMITING [None]
